FAERS Safety Report 18059664 (Version 2)
Quarter: 2020Q3

REPORT INFORMATION
  Report Type: Spontaneous
  Country: BR (occurrence: BR)
  Receive Date: 20200723
  Receipt Date: 20200729
  Transmission Date: 20201103
  Serious: Yes (Hospitalization, Other)
  Sender: FDA-Public Use
  Company Number: BR-GLAXOSMITHKLINE-BR2020134847

PATIENT
  Age: 5 Year
  Sex: Male

DRUGS (11)
  1. CLAVULIN [Suspect]
     Active Substance: AMOXICILLIN\CLAVULANATE POTASSIUM
     Indication: PRODUCT USED FOR UNKNOWN INDICATION
     Dosage: UNK
  2. DESLORATADINE. [Suspect]
     Active Substance: DESLORATADINE
     Indication: PRODUCT USED FOR UNKNOWN INDICATION
     Dosage: UNK
  3. CEFLOX [CIPROFLOXACIN] [Suspect]
     Active Substance: CIPROFLOXACIN
     Indication: PRODUCT USED FOR UNKNOWN INDICATION
     Dosage: UNK
  4. FLIXOTIDE [Suspect]
     Active Substance: FLUTICASONE PROPIONATE
     Indication: PROPHYLAXIS
  5. FLIXOTIDE [Suspect]
     Active Substance: FLUTICASONE PROPIONATE
     Indication: ASTHMA
     Dosage: 50 ?G
  6. ZINNAT [Suspect]
     Active Substance: CEFUROXIME
     Indication: PRODUCT USED FOR UNKNOWN INDICATION
     Dosage: UNK
  7. SERETIDE [Suspect]
     Active Substance: FLUTICASONE PROPIONATE\SALMETEROL XINAFOATE
     Indication: PRODUCT USED FOR UNKNOWN INDICATION
     Dosage: UNK
  8. PREDSIN [Suspect]
     Active Substance: CHLORAMPHENICOL\PREDNISOLONE
     Indication: PRODUCT USED FOR UNKNOWN INDICATION
     Dosage: UNK
  9. AEROLIN [Suspect]
     Active Substance: ALBUTEROL
     Indication: PRODUCT USED FOR UNKNOWN INDICATION
     Dosage: 2 DF, BID
  10. AVAMYS [Suspect]
     Active Substance: FLUTICASONE FUROATE
     Indication: PRODUCT USED FOR UNKNOWN INDICATION
     Dosage: UNK
  11. NASONEX [Suspect]
     Active Substance: MOMETASONE FUROATE
     Indication: PRODUCT USED FOR UNKNOWN INDICATION
     Dosage: UNK

REACTIONS (18)
  - Hypersensitivity [Unknown]
  - Pneumonia [Unknown]
  - Meningitis [Unknown]
  - Oxygen saturation decreased [Unknown]
  - Fatigue [Unknown]
  - Urticaria [Recovered/Resolved]
  - Increased bronchial secretion [Unknown]
  - Ear pain [Unknown]
  - Product use in unapproved indication [Unknown]
  - Otorrhoea [Unknown]
  - Asthenia [Unknown]
  - Malaise [Unknown]
  - Adverse event [Unknown]
  - Hypoxia [Unknown]
  - Oropharyngeal pain [Unknown]
  - Sluggishness [Unknown]
  - Dyspnoea [Unknown]
  - Product prescribing issue [Unknown]

NARRATIVE: CASE EVENT DATE: 201909
